FAERS Safety Report 10886472 (Version 2)
Quarter: 2015Q1

REPORT INFORMATION
  Report Type: Spontaneous
  Country: JP (occurrence: JP)
  Receive Date: 20150304
  Receipt Date: 20150308
  Transmission Date: 20150721
  Serious: Yes (Hospitalization)
  Sender: FDA-Public Use
  Company Number: PHJP2015JP002284

PATIENT
  Age: 88 Year
  Sex: Female

DRUGS (17)
  1. REMINYL [Suspect]
     Active Substance: GALANTAMINE
     Indication: DEMENTIA WITH LEWY BODIES
  2. LIVALO [Concomitant]
     Active Substance: PITAVASTATIN CALCIUM
     Indication: PRODUCT USED FOR UNKNOWN INDICATION
     Dosage: 1 MG, QD
     Route: 048
  3. EXELON PATCH [Suspect]
     Active Substance: RIVASTIGMINE
     Indication: DEMENTIA WITH LEWY BODIES
     Dosage: 4.6 MG/24HOURS (RIVASTIGMINE BASE 9 MG) PATCH 5 (CM2)
     Route: 062
  4. EXELON PATCH [Suspect]
     Active Substance: RIVASTIGMINE
     Dosage: 1.9 MG/24HOURS (RIVASTIGMINE BASE 4.5 MG) PATCH2.5 (CM2)
     Route: 062
  5. EXELON PATCH [Suspect]
     Active Substance: RIVASTIGMINE
     Dosage: 1.9 MG/24HOURS (RIVASTIGMINE BASE 4.5 MG) PATCH2.5 (CM2)
     Route: 062
  6. DEPAS [Concomitant]
     Active Substance: ETIZOLAM
     Indication: PRODUCT USED FOR UNKNOWN INDICATION
     Dosage: 0.5 MG, QD
     Route: 048
  7. MADOPAR [Concomitant]
     Active Substance: BENSERAZIDE HYDROCHLORIDE\LEVODOPA
     Indication: PRODUCT USED FOR UNKNOWN INDICATION
     Dosage: 3 DF, QD
     Route: 048
  8. LOXONIN [Concomitant]
     Active Substance: LOXOPROFEN SODIUM
     Indication: PRODUCT USED FOR UNKNOWN INDICATION
     Dosage: 1 DF, QD
     Route: 048
  9. OPALMON [Concomitant]
     Active Substance: LIMAPROST
     Indication: PRODUCT USED FOR UNKNOWN INDICATION
     Dosage: 3 DF, QD
     Route: 048
  10. PURSENNIDE TAB [Concomitant]
     Indication: PRODUCT USED FOR UNKNOWN INDICATION
     Dosage: 12 MG, QD
     Route: 048
  11. WARFARIN [Concomitant]
     Active Substance: WARFARIN
     Indication: PRODUCT USED FOR UNKNOWN INDICATION
     Dosage: 2 MG, QD
     Route: 048
  12. TAKEPRON [Concomitant]
     Active Substance: LANSOPRAZOLE
     Indication: PRODUCT USED FOR UNKNOWN INDICATION
     Dosage: 15 MG, QD
     Route: 048
  13. EXELON PATCH [Suspect]
     Active Substance: RIVASTIGMINE
     Dosage: 4.6 MG/24HOURS (RIVASTIGMINE BASE 9 MG) PATCH 5 (CM2)
     Route: 062
  14. AMLODIPINE [Concomitant]
     Active Substance: AMLODIPINE BESYLATE
     Indication: PRODUCT USED FOR UNKNOWN INDICATION
     Dosage: 2.5 MG, QD
     Route: 048
  15. FOSAMAX [Concomitant]
     Active Substance: ALENDRONATE SODIUM
     Indication: PRODUCT USED FOR UNKNOWN INDICATION
     Dosage: 35 MG, QD
     Route: 048
  16. EXELON PATCH [Suspect]
     Active Substance: RIVASTIGMINE
     Indication: DEMENTIA ALZHEIMER^S TYPE
     Dosage: 1.9 MG/24HOURS (RIVASTIGMINE BASE 4.5 MG) PATCH2.5 (CM2)
     Route: 062
  17. REMINYL [Suspect]
     Active Substance: GALANTAMINE
     Indication: DEMENTIA ALZHEIMER^S TYPE
     Dosage: UNK
     Route: 065

REACTIONS (7)
  - Depressed level of consciousness [Unknown]
  - Depressed mood [Unknown]
  - Nausea [Unknown]
  - Vomiting [Unknown]
  - Anger [Unknown]
  - Dyskinesia [Recovered/Resolved]
  - Dysstasia [Recovered/Resolved]
